FAERS Safety Report 5143964-3 (Version None)
Quarter: 2006Q4

REPORT INFORMATION
  Report Type: 
  Country: None (occurrence: None)
  Receive Date: 20061106
  Receipt Date: 20061102
  Transmission Date: 20070319
  Serious: Yes (Other)
  Sender: FDA-Public Use
  Company Number: US-AVENTIS-200618991US

PATIENT
  Sex: Female

DRUGS (2)
  1. DDVAP [Suspect]
     Indication: ENURESIS
     Dates: start: 20060927
  2. DDVAP [Suspect]
     Dates: end: 20061019

REACTIONS (6)
  - ABDOMINAL PAIN UPPER [None]
  - CRYING [None]
  - DEPRESSION [None]
  - PANIC ATTACK [None]
  - PSYCHOTIC DISORDER [None]
  - TEARFULNESS [None]
